FAERS Safety Report 10270701 (Version 1)
Quarter: 2014Q2

REPORT INFORMATION
  Report Type: Spontaneous
  Country: US (occurrence: None)
  Receive Date: 20140626
  Receipt Date: 20140626
  Transmission Date: 20141212
  Serious: Yes (Other)
  Sender: FDA-Public Use
  Company Number: 2515444201400006

PATIENT
  Age: 54 Year
  Sex: Female

DRUGS (1)
  1. BANANA BOAT SPORT FACES CLEAR ZINC SPF50 [Suspect]
     Indication: PROPHYLAXIS AGAINST SOLAR RADIATION
     Dosage: NO DOSAGE LIMITATIONS

REACTIONS (1)
  - Hypersensitivity [None]
